FAERS Safety Report 15834609 (Version 3)
Quarter: 2019Q3

REPORT INFORMATION
  Report Type: Spontaneous
  Country: US (occurrence: US)
  Receive Date: 20190116
  Receipt Date: 20190930
  Transmission Date: 20191004
  Serious: Yes (Other)
  Sender: FDA-Public Use
  Company Number: US-PFIZER INC-2019013186

PATIENT
  Age: 40 Year
  Sex: Female
  Weight: 68 kg

DRUGS (4)
  1. LISINOPRIL. [Concomitant]
     Active Substance: LISINOPRIL
     Indication: HYPERTENSION
     Dosage: 10 MG, 1X/DAY
     Route: 048
  2. ADVIL LIQUI-GELS [Concomitant]
     Active Substance: IBUPROFEN
     Indication: PAIN
     Dosage: UNK
  3. LYRICA [Suspect]
     Active Substance: PREGABALIN
     Indication: FIBROMYALGIA
     Dosage: 300 MG, 2X/DAY
     Route: 048
     Dates: start: 2008
  4. LYRICA [Suspect]
     Active Substance: PREGABALIN
     Indication: PAIN
     Dosage: 600 MG, 2X/DAY

REACTIONS (14)
  - Product use issue [Unknown]
  - Peroneal nerve palsy [Unknown]
  - Myocardial infarction [Unknown]
  - Intracranial aneurysm [Unknown]
  - Cervix carcinoma [Unknown]
  - Cerebrovascular accident [Unknown]
  - Drug ineffective [Unknown]
  - Intentional product misuse [Unknown]
  - Fall [Unknown]
  - Breast disorder [Unknown]
  - Feeling abnormal [Unknown]
  - Dyskinesia [Unknown]
  - Dysstasia [Unknown]
  - Contusion [Unknown]

NARRATIVE: CASE EVENT DATE: 2008
